FAERS Safety Report 11720727 (Version 3)
Quarter: 2016Q1

REPORT INFORMATION
  Report Type: Spontaneous
  Country: NO (occurrence: NO)
  Receive Date: 20151110
  Receipt Date: 20160118
  Transmission Date: 20160525
  Serious: Yes (Hospitalization)
  Sender: FDA-Public Use
  Company Number: NO-JNJFOC-20151106668

PATIENT
  Sex: Female

DRUGS (1)
  1. SIMPONI [Suspect]
     Active Substance: GOLIMUMAB
     Indication: PSORIATIC ARTHROPATHY
     Dosage: STARTED GOLIMUMAB AT THE AGE OF 70 YEARS
     Route: 058
     Dates: start: 20130212, end: 20150815

REACTIONS (1)
  - Ductal adenocarcinoma of pancreas [Recovering/Resolving]
